FAERS Safety Report 5629674-4 (Version None)
Quarter: 2008Q1

REPORT INFORMATION
  Report Type: 
  Country: None (occurrence: None)
  Receive Date: 20080218
  Receipt Date: 20080211
  Transmission Date: 20080703
  Serious: Yes (Other)
  Sender: FDA-Public Use
  Company Number: B0507559A

PATIENT
  Age: 79 Year
  Sex: Female

DRUGS (2)
  1. CLAMOXYL [Suspect]
     Indication: BRONCHITIS
     Dosage: 2CAP SINGLE DOSE
     Route: 048
     Dates: start: 20071101, end: 20071101
  2. CRESTOR [Concomitant]
     Route: 065

REACTIONS (5)
  - FACE OEDEMA [None]
  - LOSS OF CONSCIOUSNESS [None]
  - PRURITUS GENERALISED [None]
  - RESPIRATORY DISORDER [None]
  - URTICARIA [None]
